FAERS Safety Report 8445426-4 (Version None)
Quarter: 2012Q2

REPORT INFORMATION
  Report Type: 
  Country: None (occurrence: None)
  Receive Date: 20120618
  Receipt Date: 20120612
  Transmission Date: 20120825
  Serious: Yes (Death)
  Sender: FDA-Public Use
  Company Number: US-PFIZER INC-2012125845

PATIENT
  Sex: Female
  Weight: 63.5 kg

DRUGS (10)
  1. LIPITOR [Suspect]
     Indication: LIPIDS INCREASED
     Dosage: 10 MG, 1X/DAY
     Route: 048
     Dates: start: 20070101
  2. ATACAND [Concomitant]
     Dosage: 16 MG, 1X/DAY (YRS)
     Dates: start: 20020101
  3. LIPITOR [Suspect]
     Indication: BLOOD CHOLESTEROL INCREASED
     Dosage: 10 MG, DAILY
     Dates: start: 20040601
  4. ATACAND [Concomitant]
     Indication: HYPERTENSION
     Dosage: 16 MG, DAILY
     Dates: start: 20020101
  5. CORAL CALCIUM [Concomitant]
     Dosage: 1145 MG, DAILY
  6. FOLIC ACID [Concomitant]
     Dosage: 1 MG, 1X/DAY (YRS)
     Dates: start: 20020101
  7. CALTRATE 600+D [Concomitant]
     Dosage: 600 MG, DAILY
  8. FOLIC ACID [Concomitant]
     Indication: THALASSAEMIA BETA
     Dosage: 1 MG, DAILY
     Dates: start: 20020101
  9. LORATADINE [Concomitant]
     Indication: HYPERSENSITIVITY
     Dosage: 10 MG, DAILY
  10. ASPIRIN [Concomitant]
     Dosage: 81 MG, 1X/DAY
     Dates: start: 20020101

REACTIONS (5)
  - THERAPEUTIC RESPONSE UNEXPECTED [None]
  - DEATH [None]
  - TINNITUS [None]
  - LOW DENSITY LIPOPROTEIN ABNORMAL [None]
  - PLATELET COUNT DECREASED [None]
